FAERS Safety Report 19704218 (Version 1)
Quarter: 2021Q3

REPORT INFORMATION
  Report Type: Spontaneous
  Country: US (occurrence: US)
  Receive Date: 20210813
  Receipt Date: 20210813
  Transmission Date: 20211014
  Serious: No
  Sender: FDA-Public Use
  Company Number: None

PATIENT
  Age: 80 Year
  Sex: Female

DRUGS (2)
  1. EXEMESTANE 25MG ZYDUS PHARMACEUTICALS (USA) [Suspect]
     Active Substance: EXEMESTANE
     Indication: BREAST CANCER
     Route: 048
     Dates: start: 202001
  2. AFINITOR [Suspect]
     Active Substance: EVEROLIMUS
     Indication: BREAST CANCER
     Route: 048
     Dates: start: 202001

REACTIONS (3)
  - Peripheral swelling [None]
  - Lymphoedema [None]
  - Erythema [None]

NARRATIVE: CASE EVENT DATE: 20210606
